FAERS Safety Report 13354748 (Version 1)
Quarter: 2017Q1

REPORT INFORMATION
  Report Type: Spontaneous
  Country: US (occurrence: US)
  Receive Date: 20170321
  Receipt Date: 20170321
  Transmission Date: 20170429
  Serious: Yes (Hospitalization, Other)
  Sender: FDA-Public Use
  Company Number: US-WEST-WARD PHARMACEUTICALS CORP.-US-H14001-17-00739

PATIENT
  Age: 15 Year
  Sex: Male

DRUGS (2)
  1. CALCITRIOL. [Suspect]
     Active Substance: CALCITRIOL
     Indication: MINERAL SUPPLEMENTATION
     Route: 065
  2. CALCIUM CARBONATE. [Suspect]
     Active Substance: CALCIUM CARBONATE
     Indication: MINERAL SUPPLEMENTATION
     Route: 065

REACTIONS (4)
  - Milk-alkali syndrome [Recovered/Resolved]
  - Blood alkaline phosphatase decreased [Recovered/Resolved]
  - Drug monitoring procedure incorrectly performed [Unknown]
  - Acute kidney injury [Recovered/Resolved]
